FAERS Safety Report 7303200-6 (Version None)
Quarter: 2011Q1

REPORT INFORMATION
  Report Type: 
  Country: None (occurrence: None)
  Receive Date: 20110221
  Receipt Date: 20110208
  Transmission Date: 20110831
  Serious: No
  Sender: FDA-Public Use
  Company Number: US-BIOGENIDEC-2011BI005657

PATIENT
  Age: 54 Year
  Sex: Female

DRUGS (5)
  1. TYSABRI [Suspect]
     Indication: MULTIPLE SCLEROSIS
     Route: 042
     Dates: start: 20070111
  2. AVONEX [Concomitant]
     Indication: MULTIPLE SCLEROSIS
     Route: 030
  3. TYSABRI [Suspect]
     Route: 042
  4. TYSABRI [Suspect]
     Route: 042
     Dates: start: 20050425, end: 20060517
  5. AVONEX [Concomitant]
     Route: 030

REACTIONS (6)
  - BACK PAIN [None]
  - WEIGHT DECREASED [None]
  - PRURITUS [None]
  - TREMOR [None]
  - HYPERSENSITIVITY [None]
  - URTICARIA [None]
